FAERS Safety Report 8036792-2 (Version None)
Quarter: 2012Q1

REPORT INFORMATION
  Report Type: 
  Country: None (occurrence: None)
  Receive Date: 20120111
  Receipt Date: 20120110
  Transmission Date: 20120608
  Serious: Yes (Other)
  Sender: FDA-Public Use
  Company Number: US-ROCHE-793844

PATIENT
  Sex: Male
  Weight: 90.8 kg

DRUGS (1)
  1. ACCUTANE [Suspect]
     Indication: ACNE
     Route: 065
     Dates: start: 19911212, end: 19920514

REACTIONS (6)
  - EMOTIONAL DISTRESS [None]
  - SUICIDAL IDEATION [None]
  - INFLAMMATORY BOWEL DISEASE [None]
  - DEPRESSION [None]
  - ANXIETY [None]
  - IRRITABLE BOWEL SYNDROME [None]
